FAERS Safety Report 20212465 (Version 3)
Quarter: 2022Q1

REPORT INFORMATION
  Report Type: Spontaneous
  Country: US (occurrence: US)
  Receive Date: 20211221
  Receipt Date: 20220112
  Transmission Date: 20220424
  Serious: Yes (Hospitalization)
  Sender: FDA-Public Use
  Company Number: US-LUPIN PHARMACEUTICALS INC.-2021-24936

PATIENT
  Age: 65 Year
  Sex: Male
  Weight: 120.18 kg

DRUGS (1)
  1. LISINOPRIL [Suspect]
     Active Substance: LISINOPRIL
     Indication: Product used for unknown indication
     Dosage: UNK (STOPPED)
     Route: 065
     Dates: start: 20211124

REACTIONS (6)
  - Swollen tongue [Unknown]
  - Drug hypersensitivity [Unknown]
  - Heart rate decreased [Unknown]
  - Gastric disorder [Unknown]
  - Chromaturia [Unknown]
  - Mouth swelling [Unknown]
